FAERS Safety Report 6463890-7 (Version None)
Quarter: 2009Q4

REPORT INFORMATION
  Report Type: 
  Country: None (occurrence: None)
  Receive Date: 20091201
  Receipt Date: 20091125
  Transmission Date: 20100525
  Serious: Yes (Disabling)
  Sender: FDA-Public Use
  Company Number: US-ASTRAZENECA-2009SE29022

PATIENT
  Age: 55 Year
  Sex: Female

DRUGS (2)
  1. BUPIVACAINE [Suspect]
     Route: 013
  2. KENALOG [Suspect]
     Route: 013

REACTIONS (1)
  - SPINAL CORD ISCHAEMIA [None]
